FAERS Safety Report 18283738 (Version 1)
Quarter: 2020Q3

REPORT INFORMATION
  Report Type: Report from Study
  Country: US (occurrence: US)
  Receive Date: 20200918
  Receipt Date: 20200918
  Transmission Date: 20201103
  Serious: Yes (Hospitalization)
  Sender: FDA-Public Use
  Company Number: US-EXELIXIS-CABO-20032813

PATIENT
  Age: 78 Year
  Sex: Female
  Weight: 60.77 kg

DRUGS (2)
  1. CABOMETYX [Suspect]
     Active Substance: CABOZANTINIB S-MALATE
     Indication: RENAL CANCER
     Dosage: 20 MG, QOD
     Route: 048
     Dates: start: 20200308
  2. LENVIMA [Suspect]
     Active Substance: LENVATINIB
     Indication: RENAL CANCER
     Dosage: UNK

REACTIONS (3)
  - Fall [Unknown]
  - Inappropriate schedule of product administration [Unknown]
  - Muscle strain [Unknown]

NARRATIVE: CASE EVENT DATE: 20200308
